FAERS Safety Report 14137974 (Version 1)
Quarter: 2017Q4

REPORT INFORMATION
  Report Type: Spontaneous
  Country: IT (occurrence: IT)
  Receive Date: 20171027
  Receipt Date: 20171027
  Transmission Date: 20180321
  Serious: Yes (Other)
  Sender: FDA-Public Use
  Company Number: IT-ELI_LILLY_AND_COMPANY-IT201710009644

PATIENT
  Age: 80 Year
  Sex: Male
  Weight: 80 kg

DRUGS (2)
  1. ERBITUX [Suspect]
     Active Substance: CETUXIMAB
     Indication: COLON CANCER
     Dosage: 475 MG, CYCLICAL
     Route: 042
     Dates: start: 20170315
  2. IRINOTECAN HIKMA [Concomitant]
     Active Substance: IRINOTECAN
     Indication: COLON CANCER
     Dosage: 340 MG, CYCLICAL
     Route: 042
     Dates: start: 20170315

REACTIONS (3)
  - Papule [Recovered/Resolved]
  - Rash pustular [Recovered/Resolved]
  - Rash [Recovered/Resolved]

NARRATIVE: CASE EVENT DATE: 20170405
